FAERS Safety Report 15359885 (Version 1)
Quarter: 2018Q3

REPORT INFORMATION
  Report Type: Spontaneous
  Country: DE (occurrence: DE)
  Receive Date: 20180907
  Receipt Date: 20180907
  Transmission Date: 20181010
  Serious: Yes (Death)
  Sender: FDA-Public Use
  Company Number: DE-TEVA-2018-DE-952278

PATIENT
  Sex: Female

DRUGS (1)
  1. VALPROAT [Suspect]
     Active Substance: VALPROATE SODIUM
     Route: 065

REACTIONS (1)
  - Pancreatitis haemorrhagic [Fatal]

NARRATIVE: CASE EVENT DATE: 2018
